FAERS Safety Report 14780791 (Version 2)
Quarter: 2018Q3

REPORT INFORMATION
  Report Type: Spontaneous
  Country: FR (occurrence: FR)
  Receive Date: 20180419
  Receipt Date: 20180718
  Transmission Date: 20181010
  Serious: Yes (Hospitalization)
  Sender: FDA-Public Use
  Company Number: FR-GLAXOSMITHKLINE-FR2018061949

PATIENT
  Age: 59 Year
  Sex: Male
  Weight: 86 kg

DRUGS (5)
  1. KETODERM (KETOCONAZOLE) [Suspect]
     Active Substance: KETOCONAZOLE
     Indication: DERMATOPHYTOSIS
     Dosage: 1 DF, QD
     Route: 003
     Dates: start: 201703, end: 201703
  2. FLECTOR [Suspect]
     Active Substance: DICLOFENAC EPOLAMINE
     Indication: PRODUCT USED FOR UNKNOWN INDICATION
     Dosage: UNK
     Route: 003
     Dates: start: 2017, end: 2017
  3. AMYCOR [Suspect]
     Active Substance: BIFONAZOLE
     Indication: PRODUCT USED FOR UNKNOWN INDICATION
     Dosage: UNK
     Route: 003
     Dates: start: 201703, end: 201703
  4. CLAMOXYL (AMOXICILLIN TRIHYDRATE) [Suspect]
     Active Substance: AMOXICILLIN
     Indication: PRODUCT USED FOR UNKNOWN INDICATION
     Dosage: UNK
     Route: 048
     Dates: start: 201701, end: 201701
  5. LAMISIL [Suspect]
     Active Substance: TERBINAFINE HYDROCHLORIDE
     Indication: DERMATOPHYTOSIS
     Dosage: UNK
     Route: 003
     Dates: start: 201703, end: 201703

REACTIONS (1)
  - Eczema [Recovered/Resolved]

NARRATIVE: CASE EVENT DATE: 201701
